FAERS Safety Report 13625830 (Version 1)
Quarter: 2017Q2

REPORT INFORMATION
  Report Type: Spontaneous
  Country: US (occurrence: US)
  Receive Date: 20170608
  Receipt Date: 20170608
  Transmission Date: 20170830
  Serious: Yes (Death, Life-Threatening, Disabling, Other)
  Sender: FDA-Public Use
  Company Number: None

PATIENT
  Age: 33 Year
  Sex: Male
  Weight: 74.91 kg

DRUGS (2)
  1. PROPECIA [Suspect]
     Active Substance: FINASTERIDE
     Indication: ANDROGENETIC ALOPECIA
     Route: 048
     Dates: start: 200802, end: 200806
  2. PROPECIA [Suspect]
     Active Substance: FINASTERIDE
     Indication: ANDROGENETIC ALOPECIA
     Route: 048
     Dates: start: 200806, end: 200810

REACTIONS (31)
  - Orgasmic sensation decreased [None]
  - Penile size reduced [None]
  - Depression [None]
  - Constipation [None]
  - Testicular pain [None]
  - Myalgia [None]
  - Musculoskeletal pain [None]
  - Organic erectile dysfunction [None]
  - Stress [None]
  - Fatigue [None]
  - Muscle spasms [None]
  - Gastritis [None]
  - Penis disorder [None]
  - Flat affect [None]
  - Social avoidant behaviour [None]
  - Completed suicide [None]
  - Testicular atrophy [None]
  - Penile pain [None]
  - Feeling abnormal [None]
  - Muscle twitching [None]
  - Oesophageal spasm [None]
  - Bone pain [None]
  - Cognitive disorder [None]
  - Mood swings [None]
  - Peripheral coldness [None]
  - Diarrhoea [None]
  - Loss of libido [None]
  - Spermatozoa abnormal [None]
  - Ejaculation disorder [None]
  - Insomnia [None]
  - Gun shot wound [None]

NARRATIVE: CASE EVENT DATE: 20160120
